FAERS Safety Report 4647201-5 (Version None)
Quarter: 2005Q2

REPORT INFORMATION
  Report Type: 
  Country: None (occurrence: None)
  Receive Date: 20050426
  Receipt Date: 20050426
  Transmission Date: 20051028
  Serious: Yes (Disabling)
  Sender: FDA-Public Use
  Company Number: None

PATIENT
  Sex: Female
  Weight: 57.1532 kg

DRUGS (1)
  1. TOPAMAX [Suspect]
     Indication: CERVICOBRACHIAL SYNDROME
     Dosage: 25 MG-100 MG QD TO BID ORAL
     Route: 048
     Dates: start: 20040808, end: 20050302

REACTIONS (8)
  - ALOPECIA [None]
  - AMENORRHOEA [None]
  - ANOREXIA [None]
  - DISTURBANCE IN ATTENTION [None]
  - HORMONE LEVEL ABNORMAL [None]
  - MYALGIA [None]
  - SEDATION [None]
  - WEIGHT DECREASED [None]
